FAERS Safety Report 14173678 (Version 2)
Quarter: 2018Q3

REPORT INFORMATION
  Report Type: Report from Study
  Country: DE (occurrence: DE)
  Receive Date: 20171109
  Receipt Date: 20180717
  Transmission Date: 20181010
  Serious: Yes (Other)
  Sender: FDA-Public Use
  Company Number: DE-ROCHE-2008798

PATIENT
  Age: 75 Year
  Sex: Female

DRUGS (2)
  1. INTERFERON ALFA?2A [Suspect]
     Active Substance: INTERFERON ALFA-2A
     Indication: RENAL CELL CARCINOMA
     Route: 065
     Dates: start: 20101024, end: 20140731
  2. BEVACIZUMAB. [Suspect]
     Active Substance: BEVACIZUMAB
     Indication: RENAL CELL CARCINOMA
     Route: 042

REACTIONS (12)
  - Neutropenia [Unknown]
  - Leukopenia [Unknown]
  - Proteinuria [Unknown]
  - Nausea [Unknown]
  - Thrombocytopenia [Unknown]
  - Proteinuria [Unknown]
  - Anaemia [Unknown]
  - Leukopenia [Unknown]
  - Glossodynia [Unknown]
  - Back pain [Unknown]
  - Anaemia [Unknown]
  - Back pain [Unknown]

NARRATIVE: CASE EVENT DATE: 20120715
